FAERS Safety Report 11569919 (Version 1)
Quarter: 2015Q3

REPORT INFORMATION
  Report Type: Spontaneous
  Country: US (occurrence: None)
  Receive Date: 20150928
  Receipt Date: 20150928
  Transmission Date: 20151125
  Serious: No
  Sender: FDA-Public Use
  Company Number: None

PATIENT
  Age: 54 Year
  Sex: Female
  Weight: 98.88 kg

DRUGS (5)
  1. WELLBUTRIN [Concomitant]
     Active Substance: BUPROPION HYDROCHLORIDE
  2. MONTELUKAST [Suspect]
     Active Substance: MONTELUKAST SODIUM
     Indication: SEASONAL ALLERGY
     Route: 048
     Dates: start: 20150924, end: 20150926
  3. PROZAC [Concomitant]
     Active Substance: FLUOXETINE HYDROCHLORIDE
  4. ZYRTEC (GENERIC) [Concomitant]
  5. SNYTHROID [Concomitant]

REACTIONS (5)
  - Influenza like illness [None]
  - Eructation [None]
  - Nausea [None]
  - Rhinorrhoea [None]
  - Feeling abnormal [None]

NARRATIVE: CASE EVENT DATE: 20150927
